FAERS Safety Report 25140819 (Version 1)
Quarter: 2025Q1

REPORT INFORMATION
  Report Type: Spontaneous
  Country: US (occurrence: None)
  Receive Date: 20250329
  Receipt Date: 20250329
  Transmission Date: 20250409
  Serious: Yes (Hospitalization)
  Sender: FDA-CTU
  Company Number: None

PATIENT
  Age: 62 Year
  Sex: Male
  Weight: 94.5 kg

DRUGS (1)
  1. PEMBROLIZUMAB [Suspect]
     Active Substance: PEMBROLIZUMAB
     Dates: end: 20250307

REACTIONS (5)
  - Euglycaemic diabetic ketoacidosis [None]
  - Hyponatraemia [None]
  - Dysphagia [None]
  - Hypophagia [None]
  - Oedema peripheral [None]

NARRATIVE: CASE EVENT DATE: 20250318
